FAERS Safety Report 6621572-2 (Version None)
Quarter: 2010Q1

REPORT INFORMATION
  Report Type: 
  Country: None (occurrence: None)
  Receive Date: 20100309
  Receipt Date: 20100302
  Transmission Date: 20100710
  Serious: Yes (Hospitalization)
  Sender: FDA-Public Use
  Company Number: SE-AMGEN-KDL388905

PATIENT
  Sex: Male
  Weight: 57 kg

DRUGS (8)
  1. NEULASTA [Suspect]
     Indication: CHEMOTHERAPY
     Route: 058
     Dates: start: 20091220, end: 20091220
  2. IFOSFAMIDE [Concomitant]
     Route: 042
     Dates: start: 20091217, end: 20091219
  3. CARBOPLATIN [Concomitant]
     Dates: start: 20091217, end: 20091219
  4. ETOPOSIDE [Concomitant]
     Dates: start: 20091217, end: 20091219
  5. ACYCLOVIR [Concomitant]
     Route: 048
  6. TRAMADOL HCL [Concomitant]
     Route: 048
  7. APREPITANT [Concomitant]
     Route: 048
     Dates: start: 20091218, end: 20091220
  8. BETAMETHASONE [Concomitant]
     Route: 048
     Dates: start: 20091217, end: 20091221

REACTIONS (4)
  - GRANULOCYTOSIS [None]
  - LYMPHOCYTOSIS [None]
  - SOMNOLENCE [None]
  - VERTIGO [None]
